FAERS Safety Report 4778733-7 (Version None)
Quarter: 2005Q3

REPORT INFORMATION
  Report Type: 
  Country: None (occurrence: None)
  Receive Date: 20050922
  Receipt Date: 20050411
  Transmission Date: 20060218
  Serious: Yes (Life-Threatening)
  Sender: FDA-Public Use
  Company Number: 200510985GDS

PATIENT
  Age: 74 Year
  Sex: Male

DRUGS (1)
  1. PERIPLUM          (NIMODIPINE) [Suspect]
     Dosage: ORAL
     Route: 048
     Dates: start: 20050325, end: 20050326

REACTIONS (2)
  - BRONCHOSTENOSIS [None]
  - RESPIRATORY FAILURE [None]
